FAERS Safety Report 5022287-7 (Version None)
Quarter: 2006Q2

REPORT INFORMATION
  Report Type: 
  Country: None (occurrence: None)
  Receive Date: 20060609
  Receipt Date: 20060518
  Transmission Date: 20061013
  Serious: Yes (Other)
  Sender: FDA-Public Use
  Company Number: JP-JPN-A200601630

PATIENT
  Sex: Male

DRUGS (15)
  1. EPIVIR [Suspect]
     Indication: HIV INFECTION
     Dosage: 300MG PER DAY
     Route: 048
     Dates: start: 20050411, end: 20050622
  2. EPIVIR [Suspect]
     Dosage: 100MG PER DAY
     Route: 048
     Dates: start: 20050623, end: 20050630
  3. EPIVIR [Suspect]
     Dosage: 150MG PER DAY
     Route: 048
     Dates: start: 20050814
  4. ZERIT [Suspect]
     Indication: HIV INFECTION
     Dosage: 15MG PER DAY
     Route: 048
     Dates: start: 20050701, end: 20050813
  5. ZERIT [Suspect]
     Dosage: 15MG TWICE PER DAY
     Route: 048
     Dates: start: 20050814
  6. KALETRA [Suspect]
     Indication: ACQUIRED IMMUNODEFICIENCY SYNDROME
     Dosage: 6CAP PER DAY
     Route: 048
     Dates: start: 20050411
  7. VIREAD [Suspect]
     Indication: HIV INFECTION
     Dosage: 300MG PER DAY
     Route: 048
     Dates: start: 20050411, end: 20050622
  8. VIREAD [Suspect]
     Dosage: 300MG TWO TIMES PER WEEK
     Route: 048
     Dates: start: 20050623, end: 20050630
  9. DENOSINE (GANCICLOVIR) [Suspect]
     Indication: CYTOMEGALOVIRUS CHORIORETINITIS
     Dosage: 5MGK THREE TIMES PER DAY
     Route: 042
     Dates: start: 20050527, end: 20050530
  10. DENOSINE (GANCYCLOVIR) [Suspect]
     Indication: CYTOMEGALOVIRUS CHORIORETINITIS
     Dosage: 2.5MGK PER DAY
     Route: 042
     Dates: start: 20050531, end: 20050603
  11. DENOSINE (GANCICLOVIR) [Suspect]
     Dosage: 1.25MGK PER DAY
     Route: 042
     Dates: start: 20050604, end: 20050616
  12. VALIXA [Suspect]
     Indication: CYTOMEGALOVIRUS CHORIORETINITIS
     Dosage: 450MG VARIABLE DOSE
     Route: 048
     Dates: start: 20050617, end: 20060331
  13. DOXORUBICIN HCL [Suspect]
     Indication: KAPOSI'S SARCOMA
     Dosage: 31MG PER DAY
     Route: 065
     Dates: start: 20050914
  14. BAKTAR [Suspect]
     Route: 048
     Dates: start: 20050402
  15. UNASYN [Concomitant]
     Indication: TONSILLITIS
     Dosage: 3000MG TWICE PER DAY
     Route: 042
     Dates: start: 20050503, end: 20050517

REACTIONS (4)
  - CONDITION AGGRAVATED [None]
  - CYTOMEGALOVIRUS CHORIORETINITIS [None]
  - PANCYTOPENIA [None]
  - RENAL IMPAIRMENT [None]
